FAERS Safety Report 4760377-4 (Version None)
Quarter: 2005Q3

REPORT INFORMATION
  Report Type: 
  Country: None (occurrence: None)
  Receive Date: 20050829
  Receipt Date: 20050502
  Transmission Date: 20060218
  Serious: Yes (Hospitalization)
  Sender: FDA-Public Use
  Company Number: 2005-01272

PATIENT
  Age: 35 Year
  Sex: Female
  Weight: 83.4 kg

DRUGS (3)
  1. INFED [Suspect]
     Indication: IRON DEFICIENCY ANAEMIA
     Dosage: INTRAVENOUS; 100 MG, SINGLE, INTRAVENOUS
     Route: 042
     Dates: start: 20050325, end: 20050325
  2. INFED [Suspect]
     Indication: IRON DEFICIENCY ANAEMIA
     Dosage: INTRAVENOUS; 100 MG, SINGLE, INTRAVENOUS
     Route: 042
     Dates: start: 20050408, end: 20050408
  3. DECADRON [Concomitant]

REACTIONS (8)
  - ANAPHYLACTOID REACTION [None]
  - BRONCHOSPASM [None]
  - ERYTHEMA [None]
  - FLUSHING [None]
  - HYPOTENSION [None]
  - PRURITUS [None]
  - TACHYCARDIA [None]
  - UNRESPONSIVE TO VERBAL STIMULI [None]
